FAERS Safety Report 4469168-5 (Version None)
Quarter: 2004Q4

REPORT INFORMATION
  Report Type: 
  Country: None (occurrence: None)
  Receive Date: 20041005
  Receipt Date: 20040923
  Transmission Date: 20050328
  Serious: Yes (Other)
  Sender: FDA-Public Use
  Company Number: 2004070651

PATIENT
  Age: 77 Year
  Sex: Female
  Weight: 70.7611 kg

DRUGS (8)
  1. NITROSTAT [Suspect]
     Indication: CHEST PAIN
     Dosage: (0.4 MG, AS NECESSARY), SUBLINGUAL
     Route: 060
     Dates: start: 19850101
  2. NITROGLYCERIN [Suspect]
     Indication: CHEST PAIN
     Dosage: SUBLINGUAL
     Route: 060
  3. POTASSIUM CHLORIDE [Concomitant]
  4. ICAPS (MINERALS NOS, VITAMIN NOS) [Concomitant]
  5. CALCIUM (CALCIUM) [Concomitant]
  6. DIPHENHYDRAMINE HCL [Concomitant]
  7. ASPIRIN [Concomitant]
  8. GLIBOMET (GLIBENCLAMIDE, METFORMIN HYDROCHLORIDE) [Concomitant]

REACTIONS (5)
  - CARDIAC FAILURE [None]
  - DRUG INEFFECTIVE [None]
  - DYSPNOEA [None]
  - MEDICATION ERROR [None]
  - VISUAL ACUITY REDUCED [None]
